FAERS Safety Report 9190939 (Version 1)
Quarter: 2013Q1

REPORT INFORMATION
  Report Type: Spontaneous
  Country: GB (occurrence: GB)
  Receive Date: 20130326
  Receipt Date: 20130326
  Transmission Date: 20140127
  Serious: Yes (Other)
  Sender: FDA-Public Use
  Company Number: GB-TEVA-393205ISR

PATIENT
  Sex: Male

DRUGS (1)
  1. COPAXONE [Suspect]
     Dosage: 20 MILLIGRAM DAILY;
     Route: 064

REACTIONS (6)
  - Polyhydramnios [Recovered/Resolved]
  - Foetal heart rate decreased [Recovered/Resolved]
  - Ultrasound antenatal screen abnormal [Recovered/Resolved]
  - Ultrasound abdomen abnormal [Recovered/Resolved]
  - Ultrasound antenatal screen abnormal [Recovered/Resolved]
  - Normal newborn [Unknown]
